FAERS Safety Report 20974608 (Version 1)
Quarter: 2022Q2

REPORT INFORMATION
  Report Type: Spontaneous
  Country: DE (occurrence: DE)
  Receive Date: 20220617
  Receipt Date: 20220617
  Transmission Date: 20220721
  Serious: Yes (Death)
  Sender: FDA-Public Use
  Company Number: DE-PFIZER INC-202200561671

PATIENT
  Sex: Female

DRUGS (2)
  1. PEMBROLIZUMAB [Suspect]
     Active Substance: PEMBROLIZUMAB
     Dosage: 200 MG, EVERY THREE WEEKS
  2. INLYTA [Suspect]
     Active Substance: AXITINIB
     Indication: Neoplasm malignant
     Dosage: 5 MG, 2X/DAY
     Dates: start: 20191118

REACTIONS (2)
  - Off label use [Unknown]
  - Death [Fatal]
